FAERS Safety Report 4592089-4 (Version None)
Quarter: 2005Q1

REPORT INFORMATION
  Report Type: 
  Country: None (occurrence: None)
  Receive Date: 20050125
  Receipt Date: 20040922
  Transmission Date: 20050727
  Serious: No
  Sender: FDA-Public Use
  Company Number: USA040773753

PATIENT
  Age: 87 Year
  Sex: Female
  Weight: 51 kg

DRUGS (5)
  1. FORTEO [Suspect]
     Indication: OSTEOPOROSIS
     Dosage: 20 UG/1 DAY
     Dates: start: 20040101
  2. ACCUPRIL [Concomitant]
  3. ATENOLOL [Concomitant]
  4. COUMADIN [Concomitant]
  5. FOSAMAX [Concomitant]

REACTIONS (8)
  - CARDIOVASCULAR DISORDER [None]
  - HYPOAESTHESIA [None]
  - LIMB DISCOMFORT [None]
  - MUSCLE SPASMS [None]
  - NECK PAIN [None]
  - PAIN IN EXTREMITY [None]
  - PARAESTHESIA [None]
  - SPINAL COMPRESSION FRACTURE [None]
